FAERS Safety Report 23745723 (Version 2)
Quarter: 2024Q2

REPORT INFORMATION
  Report Type: Spontaneous
  Country: US (occurrence: US)
  Receive Date: 20240416
  Receipt Date: 20240604
  Transmission Date: 20240716
  Serious: No
  Sender: FDA-Public Use
  Company Number: US-ALK-ABELLO A/S-2024AA001332

PATIENT

DRUGS (6)
  1. FELIS CATUS HAIR [Suspect]
     Active Substance: FELIS CATUS HAIR
     Indication: Allergy to animal
     Dosage: UNK
     Route: 058
     Dates: start: 20240229, end: 20240314
  2. CANIS LUPUS FAMILIARIS SKIN [Suspect]
     Active Substance: CANIS LUPUS FAMILIARIS SKIN
     Indication: Allergy to animal
     Dosage: UNK
     Route: 058
     Dates: start: 20240229, end: 20240314
  3. DERMATOPHAGOIDES FARINAE [Suspect]
     Active Substance: DERMATOPHAGOIDES FARINAE
     Indication: Mite allergy
     Dosage: UNK
     Route: 058
     Dates: start: 20240229, end: 20240314
  4. 10 TREE MIX [Suspect]
     Active Substance: ACER NEGUNDO POLLEN\BETULA NIGRA POLLEN\BLACK WALNUT\CARYA OVATA POLLEN\FRAXINUS AMERICANA POLLEN\PL
     Indication: Hypersensitivity
     Dosage: UNK
     Route: 058
     Dates: start: 20240229, end: 20240314
  5. AMBROSIA ARTEMISIIFOLIA POLLEN\AMBROSIA TRIFIDA POLLEN [Suspect]
     Active Substance: AMBROSIA ARTEMISIIFOLIA POLLEN\AMBROSIA TRIFIDA POLLEN
     Indication: Hypersensitivity
     Dosage: UNK
     Route: 058
     Dates: start: 20240229, end: 20240314
  6. DERMATOPHAGOIDES PTERONYSSINUS [Suspect]
     Active Substance: DERMATOPHAGOIDES PTERONYSSINUS
     Indication: Mite allergy
     Dosage: UNK
     Dates: start: 20240229, end: 20240314

REACTIONS (10)
  - Pruritus [Recovered/Resolved]
  - Eyelid pain [Recovered/Resolved]
  - Eye pain [Recovered/Resolved]
  - Eye pruritus [Recovered/Resolved]
  - Swelling of eyelid [Recovering/Resolving]
  - Abdominal distension [Recovered/Resolved]
  - Diarrhoea [Recovered/Resolved]
  - Chalazion [Recovering/Resolving]
  - Eye swelling [Recovering/Resolving]
  - Swelling face [Recovering/Resolving]

NARRATIVE: CASE EVENT DATE: 20240314
